FAERS Safety Report 7772954-7 (Version None)
Quarter: 2011Q3

REPORT INFORMATION
  Report Type: 
  Country: None (occurrence: None)
  Receive Date: 20110922
  Receipt Date: 20100819
  Transmission Date: 20111222
  Serious: No
  Sender: FDA-Public Use
  Company Number: US-ASTRAZENECA-2010SE39301

PATIENT
  Age: 81 Year
  Sex: Female

DRUGS (6)
  1. SEROQUEL [Suspect]
     Indication: DEPRESSION
     Route: 048
     Dates: start: 20100803, end: 20100805
  2. SEROQUEL [Suspect]
     Route: 048
     Dates: start: 20100818
  3. SEROQUEL [Suspect]
     Route: 048
     Dates: start: 20100818
  4. SEROQUEL [Suspect]
     Route: 048
     Dates: start: 20100806, end: 20100817
  5. SEROQUEL [Suspect]
     Indication: AGITATION
     Route: 048
     Dates: start: 20100803, end: 20100805
  6. SEROQUEL [Suspect]
     Route: 048
     Dates: start: 20100806, end: 20100817

REACTIONS (6)
  - DEPRESSION [None]
  - ANXIETY [None]
  - MUSCLE SPASMS [None]
  - AGITATION [None]
  - MALAISE [None]
  - IMPAIRED WORK ABILITY [None]
